FAERS Safety Report 15936781 (Version 1)
Quarter: 2019Q1

REPORT INFORMATION
  Report Type: Spontaneous
  Country: US (occurrence: US)
  Receive Date: 20190117
  Receipt Date: 20190117
  Transmission Date: 20190417
  Serious: Yes (Other)
  Sender: FDA-Public Use
  Company Number: None

PATIENT
  Age: 71 Year
  Sex: Male
  Weight: 81.65 kg

DRUGS (17)
  1. FISH OIL [Concomitant]
     Active Substance: FISH OIL
  2. BIZ [Concomitant]
  3. INDERAL [Concomitant]
     Active Substance: PROPRANOLOL HYDROCHLORIDE
  4. LOTREL [Concomitant]
     Active Substance: AMLODIPINE BESYLATE\BENAZEPRIL HYDROCHLORIDE
  5. MELATONIN [Concomitant]
     Active Substance: MELATONIN
  6. OCUVITE [Concomitant]
     Active Substance: VITAMINS
  7. PROTONEX [Concomitant]
  8. MESALAMINE. [Concomitant]
     Active Substance: MESALAMINE
  9. ASPIRIN. [Concomitant]
     Active Substance: ASPIRIN
  10. VITAMIN D3 [Concomitant]
     Active Substance: CHOLECALCIFEROL
  11. CLARITIN [Concomitant]
     Active Substance: LORATADINE
  12. SYNTHROID [Concomitant]
     Active Substance: LEVOTHYROXINE SODIUM
  13. DICYCLOMINE [Concomitant]
     Active Substance: DICYCLOMINE HYDROCHLORIDE
  14. GLUCOSAMIN/CONDROTIN [Concomitant]
  15. CENTRUM SILVER [Concomitant]
     Active Substance: MINERALS\VITAMINS
  16. MESALAMINE ORAL TABLET DELAYED RELEASE 1.2GM [Suspect]
     Active Substance: MESALAMINE
     Indication: COLITIS ULCERATIVE
     Dosage: ?          QUANTITY:1.2 GM;?
     Route: 048
     Dates: start: 20181208, end: 20181226
  17. LOMOTIL [Suspect]
     Active Substance: ATROPINE SULFATE\DIPHENOXYLATE HYDROCHLORIDE

REACTIONS (10)
  - Asthenia [None]
  - Chills [None]
  - Rhinorrhoea [None]
  - Balance disorder [None]
  - Urine output increased [None]
  - Confusional state [None]
  - Dysgraphia [None]
  - Decreased appetite [None]
  - Upper-airway cough syndrome [None]
  - Diarrhoea [None]

NARRATIVE: CASE EVENT DATE: 20181224
